FAERS Safety Report 21690754 (Version 1)
Quarter: 2022Q4

REPORT INFORMATION
  Report Type: Spontaneous
  Country: US (occurrence: US)
  Receive Date: 20221206
  Receipt Date: 20221206
  Transmission Date: 20230112
  Serious: Yes (Other)
  Sender: FDA-Public Use
  Company Number: US-BRISTOL-MYERS SQUIBB COMPANY-2022-147473

PATIENT
  Age: 74 Year
  Sex: Male
  Weight: 92.99 kg

DRUGS (1)
  1. REVLIMID [Suspect]
     Active Substance: LENALIDOMIDE
     Indication: Plasma cell myeloma
     Dosage: DOSE : UNAVAILABLE;     FREQ : 1 CAPSULE DAILY FOR 21 DAYS ON AND A 7 DAY BREAK?ROA: BY MOUTH
     Route: 048
     Dates: start: 20211215

REACTIONS (3)
  - Rash [Unknown]
  - Neuropathy peripheral [Unknown]
  - Tinnitus [Unknown]

NARRATIVE: CASE EVENT DATE: 20221101
